FAERS Safety Report 7883286-0 (Version None)
Quarter: 2011Q4

REPORT INFORMATION
  Report Type: 
  Country: None (occurrence: None)
  Receive Date: 20111102
  Receipt Date: 20111026
  Transmission Date: 20120403
  Serious: Yes (Other)
  Sender: FDA-Public Use
  Company Number: PHEH2011US07960

PATIENT
  Sex: Male
  Weight: 148 kg

DRUGS (3)
  1. EXJADE [Suspect]
     Indication: CHELATION THERAPY
     Dosage: 1375 MG, QD
     Route: 048
  2. BACTRIM [Concomitant]
     Indication: URINARY TRACT INFECTION
     Dosage: 1 TAB
     Dates: start: 20111019, end: 20111024
  3. COUMADIN [Concomitant]
     Indication: ANTICOAGULANT THERAPY
     Route: 065

REACTIONS (2)
  - BLOOD URINE PRESENT [None]
  - HAEMATURIA [None]
